FAERS Safety Report 9246917 (Version 4)
Quarter: 2016Q3

REPORT INFORMATION
  Report Type: Spontaneous
  Country: US (occurrence: US)
  Receive Date: 20130422
  Receipt Date: 20160908
  Transmission Date: 20161109
  Serious: Yes (Hospitalization, Other)
  Sender: FDA-Public Use
  Company Number: US-009507513-1304USA010645

PATIENT
  Sex: Male

DRUGS (3)
  1. PROSCAR [Suspect]
     Active Substance: FINASTERIDE
     Indication: ANDROGENETIC ALOPECIA
     Dosage: 1.25 MG, QD
     Route: 048
     Dates: start: 20021112, end: 200302
  2. PROPECIA [Suspect]
     Active Substance: FINASTERIDE
     Indication: PRODUCT USED FOR UNKNOWN INDICATION
     Dosage: 1 MG, UNK
     Route: 065
     Dates: start: 20021112
  3. PROSCAR [Suspect]
     Active Substance: FINASTERIDE
     Indication: ALOPECIA

REACTIONS (21)
  - Knee arthroplasty [Unknown]
  - Cognitive disorder [Not Recovered/Not Resolved]
  - Depression [Not Recovered/Not Resolved]
  - Penis injury [Unknown]
  - Joint injury [Unknown]
  - Erectile dysfunction [Unknown]
  - Suicidal ideation [Unknown]
  - Hormone level abnormal [Unknown]
  - Blood pressure fluctuation [Unknown]
  - Loss of libido [Unknown]
  - Irritability [Unknown]
  - Wrong technique in product usage process [Unknown]
  - Semen volume decreased [Unknown]
  - Sexual dysfunction [Not Recovered/Not Resolved]
  - Knee arthroplasty [Unknown]
  - Anxiety [Not Recovered/Not Resolved]
  - Brain injury [Unknown]
  - Anger [Unknown]
  - Impatience [Unknown]
  - Ejaculation disorder [Unknown]
  - Drug administration error [Unknown]

NARRATIVE: CASE EVENT DATE: 200211
